FAERS Safety Report 21808419 (Version 1)
Quarter: 2023Q1

REPORT INFORMATION
  Report Type: Spontaneous
  Country: US (occurrence: None)
  Receive Date: 20230103
  Receipt Date: 20230103
  Transmission Date: 20230418
  Serious: No
  Sender: FDA-Public Use
  Company Number: US-VistaPharm, Inc.-VER202211-000918

PATIENT
  Age: 60 Year
  Sex: Male

DRUGS (2)
  1. SUCRALFATE ORAL SUSPENSION [Suspect]
     Active Substance: SUCRALFATE
     Indication: Gastric ulcer
     Dosage: ONE DOSE
     Route: 048
     Dates: start: 20221102
  2. SUCRALFATE ORAL SUSPENSION [Suspect]
     Active Substance: SUCRALFATE
     Dosage: THREE DOSES (ABOUT TWO TEASPOONS PER DOSE)
     Route: 048

REACTIONS (3)
  - Haemoptysis [Unknown]
  - Dysphagia [Unknown]
  - Vomiting [Unknown]
